FAERS Safety Report 21135698 (Version 3)
Quarter: 2022Q3

REPORT INFORMATION
  Report Type: Spontaneous
  Country: US (occurrence: US)
  Receive Date: 20220727
  Receipt Date: 20220824
  Transmission Date: 20221026
  Serious: No
  Sender: FDA-Public Use
  Company Number: US-HETERO-HET2022US01743

PATIENT
  Sex: Female

DRUGS (3)
  1. LOSARTAN [Suspect]
     Active Substance: LOSARTAN
     Indication: Product used for unknown indication
     Dosage: 100 MG, BOTTLE OF 1000 TABLETS
     Route: 065
     Dates: start: 202209
  2. SYNTHROID [Concomitant]
     Active Substance: LEVOTHYROXINE SODIUM
     Indication: Product used for unknown indication
     Dosage: 137 MG
     Route: 065
  3. CYTOMEL [Concomitant]
     Active Substance: LIOTHYRONINE SODIUM
     Indication: Product used for unknown indication
     Dosage: 0.5 MG
     Route: 065

REACTIONS (5)
  - Pain [Unknown]
  - Drug ineffective [Recovered/Resolved]
  - Dyspnoea [Unknown]
  - Joint swelling [Not Recovered/Not Resolved]
  - Asthenia [Unknown]
